FAERS Safety Report 4620073-0 (Version None)
Quarter: 2005Q1

REPORT INFORMATION
  Report Type: 
  Country: None (occurrence: None)
  Receive Date: 20050324
  Receipt Date: 20050314
  Transmission Date: 20050727
  Serious: Yes (Death, Hospitalization)
  Sender: FDA-Public Use
  Company Number: 2005035980

PATIENT
  Age: 61 Year
  Sex: Male

DRUGS (9)
  1. ALDACTONE [Suspect]
     Indication: ASCITES
     Dosage: SEE IMAGE
     Route: 048
     Dates: end: 20050202
  2. CLOXACILLIN SODIUM [Suspect]
     Indication: ARTHRITIS BACTERIAL
     Dosage: 6 GRAM (2 GRAM, TID), ORAL
     Route: 048
     Dates: start: 20041117, end: 20041223
  3. FUROSEMIDE [Suspect]
     Indication: ASCITES
     Dosage: SEE IMAGE
     Route: 048
  4. OXACILLIN [Suspect]
     Indication: ILL-DEFINED DISORDER
     Dosage: 6 GRAM (2 GRAM, TID), ORAL
     Route: 048
     Dates: start: 20041223, end: 20041230
  5. PRAVASTATIN SODIUM [Suspect]
     Indication: LIPID METABOLISM DISORDER
     Dates: end: 20041106
  6. LEVETIRACETAM [Suspect]
     Indication: ILL-DEFINED DISORDER
     Dosage: 2 DF (BID), ORAL
     Route: 048
     Dates: start: 20040221, end: 20050202
  7. LEVOFLOXACIN [Concomitant]
  8. ESOMEPRAZOLE MAGNESIUM             (ESOMEPRAZOLE MAGNESIUM) [Concomitant]
  9. LACTULOSE [Concomitant]

REACTIONS (10)
  - COAGULATION FACTOR V LEVEL DECREASED [None]
  - CONDITION AGGRAVATED [None]
  - HEPATIC CIRRHOSIS [None]
  - HEPATIC FAILURE [None]
  - HYPERSPLENISM [None]
  - KAOLIN CEPHALIN CLOTTING TIME ABNORMAL [None]
  - NERVOUS SYSTEM DISORDER [None]
  - OEDEMA PERIPHERAL [None]
  - PROTHROMBIN LEVEL DECREASED [None]
  - PROTHROMBIN TIME RATIO DECREASED [None]
